APPROVED DRUG PRODUCT: METAPROTERENOL SULFATE
Active Ingredient: METAPROTERENOL SULFATE
Strength: 10MG
Dosage Form/Route: TABLET;ORAL
Application: A073013 | Product #001
Applicant: WATSON LABORATORIES INC
Approved: Jan 31, 1991 | RLD: No | RS: No | Type: DISCN